FAERS Safety Report 6737995-7 (Version None)
Quarter: 2010Q2

REPORT INFORMATION
  Report Type: 
  Country: None (occurrence: None)
  Receive Date: 20100524
  Receipt Date: 20100518
  Transmission Date: 20101027
  Serious: Yes (Hospitalization)
  Sender: FDA-Public Use
  Company Number: CL-ROCHE-704147

PATIENT
  Age: 81 Year
  Sex: Male

DRUGS (5)
  1. MIRCERA [Suspect]
     Route: 030
  2. FUROSEMIDE [Concomitant]
     Route: 048
  3. PROPRANOLOL [Concomitant]
     Dosage: DOSE: 1 TABLET
     Route: 048
  4. SPIRONOLACTONE [Concomitant]
     Dosage: DOSE: 1 TABLET
     Route: 048
  5. LACTULOSE [Concomitant]
     Dosage: DOSE: 1 TABLET
     Route: 048

REACTIONS (1)
  - OESOPHAGEAL VARICES HAEMORRHAGE [None]
